FAERS Safety Report 7412121-X (Version None)
Quarter: 2011Q2

REPORT INFORMATION
  Report Type: 
  Country: None (occurrence: None)
  Receive Date: 20110413
  Receipt Date: 20110314
  Transmission Date: 20111010
  Serious: Yes (Other)
  Sender: FDA-Public Use
  Company Number: US-BAYER-201039291NA

PATIENT
  Age: 43 Year
  Sex: Female

DRUGS (6)
  1. KLONOPIN [Concomitant]
     Dosage: UNK
     Dates: start: 20030101
  2. YASMIN [Suspect]
     Dates: start: 20020101, end: 20031201
  3. AMBIEN [Concomitant]
     Dosage: 10 MG, UNK
     Dates: start: 20030101
  4. EFFEXOR [Concomitant]
     Dosage: UNK
     Dates: start: 20030101
  5. PLAVIX [Concomitant]
     Dosage: UNK
     Dates: start: 20031223, end: 20040813
  6. LEXAPRO [Concomitant]
     Dosage: 10 MG, QD
     Dates: start: 20030101

REACTIONS (2)
  - PULMONARY EMBOLISM [None]
  - DEEP VEIN THROMBOSIS [None]
